FAERS Safety Report 20892072 (Version 1)
Quarter: 2022Q2

REPORT INFORMATION
  Report Type: Spontaneous
  Country: US (occurrence: US)
  Receive Date: 20220530
  Receipt Date: 20220530
  Transmission Date: 20220721
  Serious: No
  Sender: FDA-Public Use
  Company Number: US-BRISTOL-MYERS SQUIBB COMPANY-2022-033206

PATIENT
  Age: 88 Year
  Sex: Female
  Weight: 101 kg

DRUGS (32)
  1. REVLIMID [Suspect]
     Active Substance: LENALIDOMIDE
     Indication: Plasma cell myeloma
     Dosage: FREQUENCY: ONCE DAILY 14DAYS ,7 DAYS OFF
     Route: 048
     Dates: start: 20220414, end: 20220428
  2. AMLODIPINE BESYLATE [Concomitant]
     Active Substance: AMLODIPINE BESYLATE
     Indication: Product used for unknown indication
     Route: 065
  3. MORPHINE SULFATE [Concomitant]
     Active Substance: MORPHINE SULFATE
     Dosage: TAKE 1 TABLET BY MOUTH EVERY 12 HOURS
     Route: 048
  4. ACYCLOVIR [Concomitant]
     Active Substance: ACYCLOVIR
     Indication: Product used for unknown indication
     Route: 048
  5. ACYCLOVIR [Concomitant]
     Active Substance: ACYCLOVIR
     Route: 048
     Dates: start: 20220419
  6. AMOXICILLIN\CLAVULANATE POTASSIUM [Concomitant]
     Active Substance: AMOXICILLIN\CLAVULANATE POTASSIUM
     Indication: Product used for unknown indication
     Dosage: AMOX-CLAV 875-125MG TABLETS?TAKE 1 TABLET BY MOUTH EVERY 12 HOURS WITH FOOD FOR 4 DAYS
     Route: 048
  7. ASPIRIN [Concomitant]
     Active Substance: ASPIRIN
     Indication: Product used for unknown indication
     Dosage: ASPIRIN 81MG EC LOW DOSE D/F TABS?TAKE 1 TABLET BY MOUTH EVERYDAY
     Route: 048
  8. DEXAMETHASONE [Concomitant]
     Active Substance: DEXAMETHASONE
     Indication: Product used for unknown indication
     Route: 048
  9. DRONABINOL [Concomitant]
     Active Substance: DRONABINOL
     Indication: Product used for unknown indication
     Dosage: TAKE ONE CAPSULE BY MOUTH TWICE DAILY BEFORE LUNCH AND EVENING MEAL/DINNER
  10. DOCUSATE SODIUM [Concomitant]
     Active Substance: DOCUSATE SODIUM
     Indication: Product used for unknown indication
     Route: 048
  11. FOLIC ACID [Concomitant]
     Active Substance: FOLIC ACID
     Indication: Product used for unknown indication
     Route: 048
  12. GABAPENTIN [Concomitant]
     Active Substance: GABAPENTIN
     Indication: Neuralgia
     Route: 048
  13. IBUPROFEN [Concomitant]
     Active Substance: IBUPROFEN
     Indication: Pain
     Dosage: TAKE 1 TABLET BY MOUTH EVERY 6 HOURS AS NEEDED
     Route: 048
  14. LORAZEPAM [Concomitant]
     Active Substance: LORAZEPAM
     Dosage: TAKE 1 TABLET BY MOUTH EVERY 8 HOURS AS NEEDED
     Route: 048
  15. METHOCARBAMOL [Concomitant]
     Active Substance: METHOCARBAMOL
     Dosage: TAKE 1 TABLET BY MOUTH 4 TIMES A DAY AS NEEDED
     Route: 048
  16. METHYLPREDNISOLONE [Concomitant]
     Active Substance: METHYLPREDNISOLONE
     Indication: Product used for unknown indication
     Dosage: METHYLPREDISOLONE 4MG DOSPAK
  17. ONDANSETRON [Concomitant]
     Active Substance: ONDANSETRON
     Route: 048
  18. ONDANSETRON [Concomitant]
     Active Substance: ONDANSETRON
     Dosage: TAKE 1 TO 2 TABLETS UNDER THE TONGUE THREE TIME DAILY
     Route: 048
  19. OXYCODONE [Concomitant]
     Active Substance: OXYCODONE
     Indication: Pain
     Route: 048
  20. OXYCODONE [Concomitant]
     Active Substance: OXYCODONE
     Dosage: TAKE 1 TABLET BY MOUTH EVERY 4 TO 6 HOURS AS NEEDED
     Route: 048
  21. OXYCODONE [Concomitant]
     Active Substance: OXYCODONE
     Dosage: TAKE 1 TABLET BY MOUTH EVERY 3 TO 4 TIMES AS NEEDED
     Route: 048
  22. OXYCONTIN [Concomitant]
     Active Substance: OXYCODONE HYDROCHLORIDE
     Indication: Product used for unknown indication
     Route: 048
  23. PANTOPRAZOLE [Concomitant]
     Active Substance: PANTOPRAZOLE
     Dosage: BEFORE BREAKFAST
     Route: 048
  24. TEMAZEPAM [Concomitant]
     Active Substance: TEMAZEPAM
     Dosage: EVERY NIGHT AT BED TIME
     Route: 048
  25. TRAMADOL [Concomitant]
     Active Substance: TRAMADOL
     Dosage: TAKE 2 TABLET BY MOUTH EVERY 6 HOURS AS NEEDED
     Route: 048
  26. ACETAMINOPHEN [Concomitant]
     Active Substance: ACETAMINOPHEN
     Indication: Product used for unknown indication
     Route: 065
  27. FERROUS SULFATE [Concomitant]
     Active Substance: FERROUS SULFATE
     Indication: Product used for unknown indication
  28. MELATONIN [Concomitant]
     Active Substance: MELATONIN
     Indication: Product used for unknown indication
     Route: 065
  29. MIRALAX [Concomitant]
     Active Substance: POLYETHYLENE GLYCOL 3350
     Indication: Product used for unknown indication
     Dosage: MIRALAX 3350 NF POWDER 119 GM (OTC)
  30. SYNTHROID [Concomitant]
     Active Substance: LEVOTHYROXINE SODIUM
     Indication: Product used for unknown indication
  31. VITAMIN B12 [Concomitant]
     Active Substance: CYANOCOBALAMIN
     Indication: Product used for unknown indication
  32. ACETAMINOPHEN\HYDROCODONE [Concomitant]
     Active Substance: ACETAMINOPHEN\HYDROCODONE
     Indication: Product used for unknown indication
     Dosage: TAKE 1 TABLET BY MOUTH EVERY 6 HOURS FOR UP TO 3DAYS AS NEEDED
     Route: 048
     Dates: start: 20211127

REACTIONS (6)
  - Decreased appetite [Unknown]
  - Fatigue [Unknown]
  - Back pain [Unknown]
  - Pruritus [Unknown]
  - Constipation [Unknown]
  - Off label use [Unknown]

NARRATIVE: CASE EVENT DATE: 20220414
